FAERS Safety Report 25067252 (Version 4)
Quarter: 2025Q4

REPORT INFORMATION
  Report Type: Report from Study
  Country: US (occurrence: US)
  Receive Date: 20250312
  Receipt Date: 20251224
  Transmission Date: 20260118
  Serious: Yes (Hospitalization, Other)
  Sender: ROCHE
  Company Number: US-ROCHE-10000230316

PATIENT
  Age: 85 Year
  Sex: Male

DRUGS (14)
  1. ACTEMRA ACTPEN [Suspect]
     Active Substance: TOCILIZUMAB
     Indication: Giant cell arteritis
     Dosage: INJECT THE CONTENTS OF ONE DEVICE UNDER THE SKIN ONCE WEEKLY (EVERY 7 DAYS)
     Route: 058
     Dates: start: 20240416, end: 20250213
  2. ACTEMRA ACTPEN [Suspect]
     Active Substance: TOCILIZUMAB
     Dosage: INJECT THE CONTENTS OF ONE DEVICE UNDER THE SKIN ONCE WEEKLY (EVERY 7 DAYS)
     Route: 058
     Dates: start: 20250301
  3. ACTEMRA ACTPEN [Suspect]
     Active Substance: TOCILIZUMAB
     Dosage: INJECT THE CONTENTS OF ONE DEVICE UNDER THE SKIN ONCE WEEKLY (EVERY 7 DAYS)
     Route: 058
  4. LASIX [Concomitant]
     Active Substance: FUROSEMIDE
     Indication: Swelling
     Dosage: THERAPY WAS DISCONTINUED.
     Route: 048
     Dates: start: 20250129, end: 20250228
  5. ECOTRIN [Concomitant]
     Active Substance: ASPIRIN
     Indication: Product used for unknown indication
     Dosage: THERAPY WAS DISCONTINUED.
     Route: 048
     Dates: start: 20250129, end: 20250228
  6. CHOLECALCIFEROL [Concomitant]
     Active Substance: CHOLECALCIFEROL
     Indication: Product used for unknown indication
     Route: 048
  7. JARDIANCE [Concomitant]
     Active Substance: EMPAGLIFLOZIN
     Indication: Product used for unknown indication
     Dosage: THERAPY WAS DISCONTINUED
     Route: 048
     Dates: start: 20241212
  8. LOPRESSOR [Concomitant]
     Active Substance: METOPROLOL TARTRATE
     Indication: Product used for unknown indication
     Dosage: THERAPY WAS DISCONTINUED
     Route: 048
     Dates: start: 20241129
  9. PRILOSEC [Concomitant]
     Active Substance: OMEPRAZOLE MAGNESIUM
     Indication: Product used for unknown indication
     Route: 048
     Dates: start: 20240328
  10. FLOMAX [Concomitant]
     Active Substance: TAMSULOSIN HYDROCHLORIDE
     Indication: Product used for unknown indication
     Dosage: TOOK 1 CAPSULE EVERY EVENING.
     Route: 048
     Dates: start: 20240216, end: 20250310
  11. EFFEXOR XR [Concomitant]
     Active Substance: VENLAFAXINE HYDROCHLORIDE
     Indication: Product used for unknown indication
     Dosage: TOOK 1 CAPSULE EVERY EVENING.
     Route: 048
     Dates: start: 20241016
  12. METAMUCIL [Concomitant]
     Active Substance: PLANTAGO SEED
     Indication: Product used for unknown indication
     Dosage: THERAPY WAS DISCONTINUED
     Route: 048
  13. ELIQUIS [Concomitant]
     Active Substance: APIXABAN
     Indication: Product used for unknown indication
     Route: 048
     Dates: start: 20250129, end: 20250228
  14. NARCO [Concomitant]
     Indication: Pain
     Dosage: 5/325 MG
     Route: 048
     Dates: start: 20250129, end: 20250203

REACTIONS (8)
  - Fall [Unknown]
  - Hip fracture [Recovering/Resolving]
  - Pancytopenia [Unknown]
  - Hypotension [Unknown]
  - White blood cell count decreased [Unknown]
  - Irritable bowel syndrome [Unknown]
  - Cardiac failure [Unknown]
  - Hypoacusis [Unknown]

NARRATIVE: CASE EVENT DATE: 20250123
